FAERS Safety Report 5913585-0 (Version None)
Quarter: 2008Q4

REPORT INFORMATION
  Report Type: 
  Country: None (occurrence: None)
  Receive Date: 20081006
  Receipt Date: 20080922
  Transmission Date: 20090506
  Serious: Yes (Other)
  Sender: FDA-Public Use
  Company Number: 234797J08USA

PATIENT
  Age: 52 Year
  Sex: Female

DRUGS (1)
  1. REBIF [Suspect]
     Indication: MULTIPLE SCLEROSIS

REACTIONS (6)
  - DIARRHOEA [None]
  - HYPOTHYROIDISM [None]
  - PARASITIC GASTROENTERITIS [None]
  - PITUITARY TUMOUR [None]
  - THYROID NEOPLASM [None]
  - WEIGHT DECREASED [None]
